FAERS Safety Report 5473049-8 (Version None)
Quarter: 2007Q4

REPORT INFORMATION
  Report Type: 
  Country: None (occurrence: None)
  Receive Date: 20071001
  Receipt Date: 20070314
  Transmission Date: 20080405
  Serious: No
  Sender: FDA-Public Use
  Company Number: US-ASTRAZENECA-2007UW02761

PATIENT
  Age: 53 Year
  Sex: Female
  Weight: 48.1 kg

DRUGS (5)
  1. ARIMIDEX [Suspect]
     Indication: BREAST CANCER
     Route: 048
     Dates: start: 20061023
  2. BELERGAL [Concomitant]
  3. MOBIC [Concomitant]
  4. PREVACID [Concomitant]
  5. CELEXA [Concomitant]

REACTIONS (8)
  - AMNESIA [None]
  - ARTHRALGIA [None]
  - ARTHRITIS [None]
  - BONE PAIN [None]
  - FATIGUE [None]
  - OSTEOPENIA [None]
  - RASH [None]
  - SWELLING [None]
